FAERS Safety Report 9608642 (Version 2)
Quarter: 2013Q4

REPORT INFORMATION
  Report Type: Spontaneous
  Country: JP (occurrence: JP)
  Receive Date: 20131009
  Receipt Date: 20131009
  Transmission Date: 20140711
  Serious: Yes (Other)
  Sender: FDA-Public Use
  Company Number: JP-BAYER-2013-099151

PATIENT
  Age: 63 Year
  Sex: Male

DRUGS (1)
  1. STIVARGA [Suspect]
     Indication: COLON CANCER
     Dosage: 160 MG, QD
     Route: 048
     Dates: start: 20130627, end: 20130815

REACTIONS (4)
  - Platelet count decreased [Recovering/Resolving]
  - Deafness [Recovering/Resolving]
  - Epistaxis [Recovered/Resolved]
  - Stomatitis [Recovering/Resolving]
